FAERS Safety Report 9792198 (Version 2)
Quarter: 2014Q1

REPORT INFORMATION
  Report Type: Spontaneous
  Country: US (occurrence: None)
  Receive Date: 20131230
  Receipt Date: 20140103
  Transmission Date: 20141002
  Serious: Yes (Other)
  Sender: FDA-Public Use
  Company Number: 2013US0522

PATIENT
  Sex: Male

DRUGS (1)
  1. KINERET [Suspect]
     Indication: GOUT
     Dosage: 1 IN 1 D
     Route: 058
     Dates: start: 20131031

REACTIONS (4)
  - Drug hypersensitivity [None]
  - Pharyngeal oedema [None]
  - Flushing [None]
  - Oropharyngeal discomfort [None]
